FAERS Safety Report 20860151 (Version 1)
Quarter: 2022Q2

REPORT INFORMATION
  Report Type: Spontaneous
  Country: US (occurrence: None)
  Receive Date: 20220520
  Receipt Date: 20220520
  Transmission Date: 20220720
  Serious: Yes (Hospitalization)
  Sender: FDA-Public Use
  Company Number: None

PATIENT
  Sex: Male
  Weight: 104.78 kg

DRUGS (16)
  1. VOTRIENT [Suspect]
     Active Substance: PAZOPANIB HYDROCHLORIDE
     Indication: Renal cancer
     Dosage: 800MG DAILY ORAL
     Route: 048
     Dates: start: 202202
  2. AVAPRO [Concomitant]
     Active Substance: IRBESARTAN
  3. DOCUSATE [Concomitant]
     Active Substance: DOCUSATE
  4. FUROSEMIDE [Concomitant]
     Active Substance: FUROSEMIDE
  5. GABAPENTIN [Concomitant]
     Active Substance: GABAPENTIN
  6. LINZESS [Concomitant]
     Active Substance: LINACLOTIDE
  7. OXYCODONE [Concomitant]
     Active Substance: OXYCODONE
  8. PROMETHAZINE [Concomitant]
     Active Substance: PROMETHAZINE HYDROCHLORIDE
  9. ONDANSETRON [Concomitant]
     Active Substance: ONDANSETRON
  10. LEVOTHYROXINE [Concomitant]
     Active Substance: LEVOTHYROXINE
  11. FELODIPINEEXTENDED-RELEASE TABLETS [Concomitant]
     Active Substance: FELODIPINE
  12. CLONIDINE [Concomitant]
     Active Substance: CLONIDINE
  13. LOMOTIL [Concomitant]
     Active Substance: ATROPINE SULFATE\DIPHENOXYLATE HYDROCHLORIDE
  14. ELIPQUIS [Concomitant]
  15. BUMETANIDE [Concomitant]
     Active Substance: BUMETANIDE
  16. METOPROLOL [Concomitant]
     Active Substance: METOPROLOL

REACTIONS (1)
  - Dehydration [None]
